FAERS Safety Report 13226099 (Version 1)
Quarter: 2017Q1

REPORT INFORMATION
  Report Type: Spontaneous
  Country: GB (occurrence: GB)
  Receive Date: 20170213
  Receipt Date: 20170213
  Transmission Date: 20170428
  Serious: Yes (Other)
  Sender: FDA-Public Use
  Company Number: GB-TEVA-739530ACC

PATIENT
  Age: 20 Year
  Sex: Male

DRUGS (5)
  1. BETNOVATE [Suspect]
     Active Substance: BETAMETHASONE
     Indication: DYSHIDROTIC ECZEMA
     Route: 061
  2. PREDNISOLONE. [Suspect]
     Active Substance: PREDNISOLONE
     Indication: DYSHIDROTIC ECZEMA
     Route: 048
  3. EUMOVATE [Suspect]
     Active Substance: CLOBETASONE BUTYRATE
     Indication: DYSHIDROTIC ECZEMA
     Route: 061
  4. HYDROCORTISONE. [Suspect]
     Active Substance: HYDROCORTISONE
     Indication: DYSHIDROTIC ECZEMA
     Route: 042
  5. EMOLLIENT BASE [Concomitant]

REACTIONS (3)
  - Dyshidrotic eczema [Recovered/Resolved with Sequelae]
  - Skin hypopigmentation [Unknown]
  - Condition aggravated [Recovered/Resolved with Sequelae]
